FAERS Safety Report 11215540 (Version 1)
Quarter: 2015Q2

REPORT INFORMATION
  Report Type: Spontaneous
  Country: GB (occurrence: GB)
  Receive Date: 20150624
  Receipt Date: 20150624
  Transmission Date: 20150821
  Serious: Yes (Life-Threatening)
  Sender: FDA-Public Use
  Company Number: GB-PFIZER INC-2015203929

PATIENT
  Age: 7 Year
  Sex: Male
  Weight: 27 kg

DRUGS (4)
  1. ABIDEC [Concomitant]
     Indication: VITAMIN SUPPLEMENTATION
     Dosage: 0.6 ML, 1X/DAY, DROPS
     Route: 048
     Dates: start: 20150408
  2. SULFASALAZINE. [Suspect]
     Active Substance: SULFASALAZINE
     Indication: BEHCET^S SYNDROME
     Dosage: 250 MG, 3X/DAY
     Route: 048
     Dates: start: 20150408, end: 20150528
  3. RANITIDINE [Concomitant]
     Active Substance: RANITIDINE\RANITIDINE HYDROCHLORIDE
     Indication: PROPHYLAXIS AGAINST GASTROINTESTINAL ULCER
     Dosage: 90 MG, 2X/DAY
     Route: 048
     Dates: start: 20150226
  4. PREDNISOLONE. [Concomitant]
     Active Substance: PREDNISOLONE
     Indication: BEHCET^S SYNDROME
     Dosage: 5 MG, 1X/DAY
     Route: 048
     Dates: start: 20150226

REACTIONS (4)
  - Thrombocytopenia [Unknown]
  - Haematoma [Unknown]
  - Contusion [Unknown]
  - Petechiae [Unknown]

NARRATIVE: CASE EVENT DATE: 201505
